FAERS Safety Report 22659991 (Version 1)
Quarter: 2023Q2

REPORT INFORMATION
  Report Type: Spontaneous
  Country: US (occurrence: None)
  Receive Date: 20230628
  Receipt Date: 20230628
  Transmission Date: 20230722
  Serious: No
  Sender: FDA-Public Use
  Company Number: None

PATIENT

DRUGS (1)
  1. EMERPHED [Suspect]
     Active Substance: EPHEDRINE SULFATE
     Route: 058

REACTIONS (3)
  - Product design confusion [None]
  - Product packaging confusion [None]
  - Product communication issue [None]
